FAERS Safety Report 25570128 (Version 1)
Quarter: 2025Q3

REPORT INFORMATION
  Report Type: Spontaneous
  Country: US (occurrence: US)
  Receive Date: 20250717
  Receipt Date: 20250717
  Transmission Date: 20251021
  Serious: Yes (Hospitalization, Other)
  Sender: WOCKHARDT BIO AG
  Company Number: US-WOCKHARDT BIO AG-2025WBA000049

PATIENT
  Age: 69 Year
  Sex: Female

DRUGS (6)
  1. PIPERACILLIN AND TAZOBACTAM [Suspect]
     Active Substance: PIPERACILLIN SODIUM\TAZOBACTAM SODIUM
     Indication: Beta haemolytic streptococcal infection
     Route: 042
  2. LINEZOLID [Suspect]
     Active Substance: LINEZOLID
     Indication: Beta haemolytic streptococcal infection
     Route: 048
  3. ACETAMINOPHEN [Concomitant]
     Active Substance: ACETAMINOPHEN
     Indication: Osteoarthritis
     Route: 065
  4. LISINOPRIL [Concomitant]
     Active Substance: LISINOPRIL
     Indication: Hypertension
     Route: 065
  5. METFORMIN [Concomitant]
     Active Substance: METFORMIN HYDROCHLORIDE
     Indication: Type 2 diabetes mellitus
     Route: 065
  6. INSULIN GLARGINE [Concomitant]
     Active Substance: INSULIN GLARGINE
     Indication: Type 2 diabetes mellitus
     Route: 065

REACTIONS (1)
  - Pemphigus [Recovered/Resolved]
